FAERS Safety Report 9375097 (Version 3)
Quarter: 2013Q3

REPORT INFORMATION
  Report Type: Spontaneous
  Country: US (occurrence: US)
  Receive Date: 20130628
  Receipt Date: 20130822
  Transmission Date: 20140515
  Serious: No
  Sender: FDA-Public Use
  Company Number: US-PFIZER INC-2013189039

PATIENT
  Age: 76 Year
  Sex: Male
  Weight: 93 kg

DRUGS (21)
  1. GENOTROPIN MQ [Suspect]
     Indication: GROWTH HORMONE DEFICIENCY
     Dosage: 0.4 MG, 1X/DAY
     Route: 058
     Dates: start: 20130124, end: 2013
  2. GENOTROPIN MQ [Suspect]
     Dosage: 0.6 MG, 1X/DAY
     Dates: start: 2013, end: 2013
  3. GENOTROPIN MQ [Suspect]
     Dosage: 0.4 MG, 1X/DAY
     Dates: start: 2013
  4. GENOTROPIN MQ [Suspect]
     Dosage: 0.4 MG, 1X/DAY
     Route: 058
  5. HYDROCORTISONE [Suspect]
     Dosage: 20 MG IN THE MORNING AND 5 MG AT BEDTIME
     Dates: end: 2013
  6. LYRICA [Concomitant]
     Indication: NEUROPATHY PERIPHERAL
     Dosage: UNK
  7. LYRICA [Concomitant]
     Indication: MUSCULAR WEAKNESS
  8. LYRICA [Concomitant]
     Indication: PARAESTHESIA
  9. GABAPENTIN [Concomitant]
     Indication: NEUROPATHY PERIPHERAL
     Dosage: UNK
  10. TESTOSTERONE [Concomitant]
     Dosage: 250 MG, EVERY TWO WEEKS
  11. CHLORTHALIDONE [Concomitant]
     Dosage: UNK
  12. PREDNISONE [Concomitant]
     Indication: HYPOPITUITARISM
     Dosage: 5 MG IN THE MORNING AND 2.5 MG IN THE EVENING
  13. MULTAQ [Concomitant]
     Dosage: 400 (NO UNIT PROVIDED), 2X/DAY
  14. FLOMAX [Concomitant]
     Dosage: 0.4 (NO UNIT PROVIDED), 2X/DAY
  15. LEVOTHYROXINE [Concomitant]
     Dosage: 75 UG, 1X/DAY
  16. LEVOTHYROXINE [Concomitant]
     Dosage: 88 UG, 1X/DAY
     Dates: start: 2013, end: 2013
  17. LEVOTHYROXINE [Concomitant]
     Dosage: 100 UG, 1X/DAY
     Dates: start: 2013
  18. AVODART [Concomitant]
     Indication: PROSTATIC DISORDER
     Dosage: UNK
  19. CALCIUM WITH VITAMIN D [Concomitant]
     Dosage: UNK
  20. FORTESTA [Concomitant]
     Dosage: 40 MG, 1X/DAY (TWO PUMP ACTUATIONS PER THIGH)
     Dates: start: 2013
  21. ASPIRIN [Concomitant]
     Dosage: UNK

REACTIONS (11)
  - Injection site cyst [Not Recovered/Not Resolved]
  - Application site pain [Unknown]
  - Weight increased [Unknown]
  - Oedema [Recovered/Resolved]
  - Oedema peripheral [Recovered/Resolved]
  - Swelling [Unknown]
  - Blood pressure increased [Unknown]
  - Mood swings [Unknown]
  - Asthenia [Unknown]
  - Lipoma [Unknown]
  - Musculoskeletal pain [Unknown]
